FAERS Safety Report 6240514-5 (Version None)
Quarter: 2009Q2

REPORT INFORMATION
  Report Type: 
  Country: None (occurrence: None)
  Receive Date: 20090623
  Receipt Date: 20090409
  Transmission Date: 20091009
  Serious: No
  Sender: FDA-Public Use
  Company Number: US-ASTRAZENECA-2009UW08955

PATIENT
  Age: 95 Year
  Sex: Female
  Weight: 64.4 kg

DRUGS (6)
  1. PULMICORT RESPULES [Suspect]
     Indication: ASTHMA
     Route: 055
     Dates: start: 20090408, end: 20090408
  2. IMDUR [Concomitant]
  3. NIFEDIPINE [Concomitant]
  4. ASPIRIN [Concomitant]
  5. LASIX [Concomitant]
  6. POTASSIUM CHLORIDE [Concomitant]

REACTIONS (1)
  - OEDEMA PERIPHERAL [None]
